FAERS Safety Report 4717621-9 (Version None)
Quarter: 2005Q3

REPORT INFORMATION
  Report Type: 
  Country: None (occurrence: None)
  Receive Date: 20050712
  Receipt Date: 20050415
  Transmission Date: 20060218
  Serious: No
  Sender: FDA-Public Use
  Company Number: 2005S1000031

PATIENT
  Age: 45 Year
  Sex: Male

DRUGS (2)
  1. CUBICIN [Suspect]
     Dosage: 400 MG; Q24H; IV
     Route: 042
  2. VANCOMYCIN [Concomitant]

REACTIONS (1)
  - RASH ERYTHEMATOUS [None]
